FAERS Safety Report 19063002 (Version 1)
Quarter: 2021Q1

REPORT INFORMATION
  Report Type: Spontaneous
  Country: US (occurrence: US)
  Receive Date: 20210326
  Receipt Date: 20210326
  Transmission Date: 20210420
  Serious: Yes (Other)
  Sender: FDA-Public Use
  Company Number: US-BAYER-2021-108096

PATIENT
  Age: 54 Year
  Sex: Female

DRUGS (2)
  1. COPANLISIB. [Suspect]
     Active Substance: COPANLISIB
     Indication: PERIPHERAL T-CELL LYMPHOMA UNSPECIFIED REFRACTORY
     Dosage: DAYS 1, 8, AND 15 OF A 28?DAY CYCLE
     Route: 042
  2. COPANLISIB. [Suspect]
     Active Substance: COPANLISIB
     Indication: PERIPHERAL T-CELL LYMPHOMA UNSPECIFIED RECURRENT

REACTIONS (1)
  - Hyperglycaemia [Recovering/Resolving]
